FAERS Safety Report 9225604 (Version 3)
Quarter: 2013Q3

REPORT INFORMATION
  Report Type: Spontaneous
  Country: US (occurrence: US)
  Receive Date: 20130411
  Receipt Date: 20130912
  Transmission Date: 20140515
  Serious: Yes (Death, Hospitalization)
  Sender: FDA-Public Use
  Company Number: US-GLAXOSMITHKLINE-A1002322A

PATIENT
  Age: 55 Year
  Sex: Female

DRUGS (2)
  1. FLOLAN [Suspect]
     Indication: PULMONARY ARTERIAL HYPERTENSION
     Dosage: 90NGKM CONTINUOUS
     Route: 042
     Dates: start: 20081120
  2. ADCIRCA [Concomitant]

REACTIONS (4)
  - Death [Fatal]
  - Diarrhoea [Unknown]
  - Hypotension [Unknown]
  - Eye disorder [Unknown]
